FAERS Safety Report 4824585-6 (Version None)
Quarter: 2005Q4

REPORT INFORMATION
  Report Type: 
  Country: None (occurrence: None)
  Receive Date: 20051108
  Receipt Date: 20051028
  Transmission Date: 20060501
  Serious: Yes (Disabling)
  Sender: FDA-Public Use
  Company Number: GBS051018944

PATIENT
  Age: 9 Year
  Weight: 47 kg

DRUGS (1)
  1. STRATTERA [Suspect]
     Indication: ATTENTION DEFICIT/HYPERACTIVITY DISORDER
     Dosage: 60 MG
     Dates: start: 20050829, end: 20050924

REACTIONS (5)
  - EMOTIONAL DISORDER [None]
  - MOOD SWINGS [None]
  - MUSCLE TWITCHING [None]
  - NIGHTMARE [None]
  - TEARFULNESS [None]
